FAERS Safety Report 6456617-6 (Version None)
Quarter: 2009Q4

REPORT INFORMATION
  Report Type: 
  Country: None (occurrence: None)
  Receive Date: 20091119
  Receipt Date: 20091109
  Transmission Date: 20100525
  Serious: Yes (Death, Other)
  Sender: FDA-Public Use
  Company Number: 2009-04718

PATIENT
  Age: 57 Year
  Sex: Male
  Weight: 47 kg

DRUGS (18)
  1. VELCADE [Suspect]
     Indication: MULTIPLE MYELOMA
     Dosage: 1.1 MG, INTRAVENOUS ; 1.4 MG, INTRAVENOUS ; 1.9 MG, INTRAVENOUS
     Route: 042
     Dates: start: 20071120, end: 20071120
  2. VELCADE [Suspect]
     Indication: MULTIPLE MYELOMA
     Dosage: 1.1 MG, INTRAVENOUS ; 1.4 MG, INTRAVENOUS ; 1.9 MG, INTRAVENOUS
     Route: 042
     Dates: start: 20071127, end: 20071211
  3. VELCADE [Suspect]
     Indication: MULTIPLE MYELOMA
     Dosage: 1.1 MG, INTRAVENOUS ; 1.4 MG, INTRAVENOUS ; 1.9 MG, INTRAVENOUS
     Route: 042
     Dates: start: 20080118, end: 20080128
  4. PREDNISOLONE [Concomitant]
  5. POLARAMINE (DEXCHLORPHENIRAMIEN MALEATE) [Concomitant]
  6. OMEPRAZOLE [Concomitant]
  7. SULFAMETHOXAZOLE AND TRIMETHOPRIM [Concomitant]
  8. NORVASC [Concomitant]
  9. OXYCONTIN [Concomitant]
  10. ALLOPURINOL [Concomitant]
  11. FLUCONAZOLE [Concomitant]
  12. PLATELETS [Concomitant]
  13. OZEX (TOSUFLOXACIN TOSILATE) [Concomitant]
  14. METHYCOBAL (MECOBALAMIN) [Concomitant]
  15. TEGRETOL [Concomitant]
  16. MORPHINE [Concomitant]
  17. MAGNESIUM OXIDE (MAGNESIUM OXIDE) [Concomitant]
  18. ISOSORBIDE DINITRATE [Concomitant]

REACTIONS (7)
  - DECREASED APPETITE [None]
  - DISEASE PROGRESSION [None]
  - MULTIPLE MYELOMA [None]
  - NEOPLASM [None]
  - PLATELET COUNT DECREASED [None]
  - TUMOUR LYSIS SYNDROME [None]
  - WHITE BLOOD CELL COUNT DECREASED [None]
